FAERS Safety Report 9539739 (Version 1)
Quarter: 2013Q2

REPORT INFORMATION
  Report Type: Spontaneous
  Country: US (occurrence: None)
  Receive Date: 20130521
  Receipt Date: 20130521
  Transmission Date: 20140414
  Serious: Yes (Other)
  Sender: FDA-Public Use
  Company Number: 1000043902

PATIENT
  Age: 64 Year
  Sex: Male

DRUGS (2)
  1. TUDORZA PRESSAIR [Suspect]
     Indication: CHRONIC OBSTRUCTIVE PULMONARY DISEASE
     Dosage: 800MCG (400 MCG, 2 IN 1 D), ORAL
     Route: 048
     Dates: start: 20130327, end: 20130328
  2. TUDORZA PRESSAIR [Suspect]
     Indication: BRONCHITIS
     Dosage: 800MCG (400 MCG, 2 IN 1 D), ORAL
     Route: 048
     Dates: start: 20130327, end: 20130328

REACTIONS (1)
  - Cough [None]
